FAERS Safety Report 21397406 (Version 1)
Quarter: 2022Q3

REPORT INFORMATION
  Report Type: Report from Study
  Country: DE (occurrence: DE)
  Receive Date: 20220930
  Receipt Date: 20220930
  Transmission Date: 20221027
  Serious: Yes (Life-Threatening, Hospitalization, Other)
  Sender: FDA-Public Use
  Company Number: DE-ROCHE-1215501

PATIENT
  Age: 38 Year
  Sex: Female
  Weight: 65 kg

DRUGS (44)
  1. RIBAVIRIN [Suspect]
     Active Substance: RIBAVIRIN
     Indication: Chronic hepatitis C
     Dosage: 1200 MG, QD
     Route: 048
     Dates: start: 20130321, end: 20140317
  2. PEGINTERFERON ALFA-2A [Suspect]
     Active Substance: PEGINTERFERON ALFA-2A
     Indication: Chronic hepatitis C
     Dosage: 180 MICROGRAM, QW
     Route: 058
     Dates: start: 20130415, end: 20131110
  3. PEGINTERFERON ALFA-2A [Suspect]
     Active Substance: PEGINTERFERON ALFA-2A
     Indication: Hepatitis C
     Dosage: 135 MICROGRAM, QW
     Route: 058
     Dates: start: 20131111, end: 20131117
  4. PEGINTERFERON ALFA-2A [Suspect]
     Active Substance: PEGINTERFERON ALFA-2A
     Dosage: 180 MICROGRAM, QW
     Route: 058
     Dates: start: 20131118, end: 20140317
  5. RISPERIDONE [Concomitant]
     Active Substance: RISPERIDONE
     Dosage: UNK
     Route: 065
     Dates: start: 20140401, end: 20140408
  6. CHOLECALCIFEROL [Concomitant]
     Active Substance: CHOLECALCIFEROL
     Dosage: 1 DF, QD
     Route: 048
     Dates: start: 20130320, end: 20130415
  7. TETRACAINE HYDROCHLORIDE [Concomitant]
     Active Substance: TETRACAINE HYDROCHLORIDE
     Dosage: UNK
     Route: 065
     Dates: start: 20130627
  8. TETRACAINE HYDROCHLORIDE [Concomitant]
     Active Substance: TETRACAINE HYDROCHLORIDE
     Route: 065
     Dates: start: 20130627
  9. MIRTAZAPINE [Concomitant]
     Active Substance: MIRTAZAPINE
     Dosage: 15 MG, UNK
     Route: 065
     Dates: start: 20130402
  10. CEFUROXIME [Concomitant]
     Active Substance: CEFUROXIME
     Dosage: 500 MG, UNK
     Route: 065
     Dates: start: 20130603, end: 20130609
  11. OMEPRAZOLE [Concomitant]
     Active Substance: OMEPRAZOLE
     Dosage: UNK
     Route: 065
     Dates: start: 20130503
  12. METAMIZOLE SODIUM [Concomitant]
     Active Substance: METAMIZOLE SODIUM
     Dosage: 500 MG, UNK
     Route: 065
     Dates: start: 20130627
  13. L THYROXIN BETA [Concomitant]
     Dosage: 25 MICROGRAM, UNK
     Route: 065
     Dates: start: 20131202
  14. L THYROXIN BETA [Concomitant]
     Dosage: 12.5 MICROGRAM, UNK
     Route: 065
     Dates: start: 20131203
  15. L THYROXIN BETA [Concomitant]
     Dosage: 50 MICROGRAM, UNK
     Route: 065
     Dates: start: 20130820, end: 20131202
  16. L THYROXIN BETA [Concomitant]
     Dosage: UNK
     Route: 065
     Dates: start: 20130722, end: 20130819
  17. L THYROXIN BETA [Concomitant]
     Dosage: UNK
     Route: 065
     Dates: start: 20130627
  18. L THYROXIN BETA [Concomitant]
     Dosage: 25 MICROGRAM, UNK
     Route: 065
     Dates: start: 20130617
  19. AZITHROMYCIN [Concomitant]
     Active Substance: AZITHROMYCIN
     Dosage: 500 MG, UNK
     Route: 065
     Dates: start: 20130503, end: 20130505
  20. AZITHROMYCIN [Concomitant]
     Active Substance: AZITHROMYCIN
     Dosage: 500 MG, UNK
     Route: 065
     Dates: start: 20140408, end: 20140410
  21. AZITHROMYCIN [Concomitant]
     Active Substance: AZITHROMYCIN
     Dosage: 500 MG, UNK
     Route: 065
     Dates: start: 20130712, end: 20140714
  22. AZITHROMYCIN [Concomitant]
     Active Substance: AZITHROMYCIN
     Dosage: 500 MG, UNK
     Route: 065
     Dates: start: 20130627, end: 20130629
  23. AZITHROMYCIN [Concomitant]
     Active Substance: AZITHROMYCIN
     Dosage: 500 MG, UNK
     Route: 065
     Dates: start: 20130527, end: 20130529
  24. AZITHROMYCIN [Concomitant]
     Active Substance: AZITHROMYCIN
     Dosage: LATER 1 PER ONE DAY
     Route: 065
     Dates: start: 20141030, end: 20141104
  25. AZITHROMYCIN [Concomitant]
     Active Substance: AZITHROMYCIN
     Dosage: 500 MG, UNK
     Route: 065
     Dates: start: 20130712, end: 20130714
  26. VIVINOX [Concomitant]
     Dosage: AS NECESSARY
     Route: 065
     Dates: start: 20130909
  27. LOPERAMIDE [Concomitant]
     Active Substance: LOPERAMIDE
     Dosage: AS NECESSARY
     Route: 065
     Dates: start: 20130603, end: 20130603
  28. BETAMETHASONE DIPROPIONATE\CLOTRIMAZOLE [Concomitant]
     Active Substance: BETAMETHASONE DIPROPIONATE\CLOTRIMAZOLE
     Dosage: UNK
     Route: 065
     Dates: start: 20130610
  29. AMPHOTERICIN B [Concomitant]
     Active Substance: AMPHOTERICIN B
     Dosage: UNK MG, UNK
     Route: 065
     Dates: start: 20130610
  30. AMPHOTERICIN B [Concomitant]
     Active Substance: AMPHOTERICIN B
     Dosage: 5 DF, QD
     Route: 065
     Dates: start: 20131230
  31. BETAGALEN [Concomitant]
     Dosage: UNK
     Route: 065
     Dates: start: 20130426
  32. AMPICILLIN SODIUM\SULBACTAM SODIUM [Concomitant]
     Active Substance: AMPICILLIN SODIUM\SULBACTAM SODIUM
     Dosage: 1-0-1
     Route: 065
     Dates: start: 20140324, end: 20140328
  33. IBUPROFEN [Concomitant]
     Active Substance: IBUPROFEN
     Dosage: AS NECESSARY
     Route: 065
  34. IBUPROFEN [Concomitant]
     Active Substance: IBUPROFEN
     Dosage: AS NECESSARY
     Route: 065
  35. IBUPROFEN [Concomitant]
     Active Substance: IBUPROFEN
     Dosage: AS REQUIRED
     Route: 065
  36. IBUPROFEN [Concomitant]
     Active Substance: IBUPROFEN
     Dosage: AS NECESSARY
     Route: 065
  37. IBUPROFEN [Concomitant]
     Active Substance: IBUPROFEN
     Dosage: AS NECESSARY
     Route: 065
  38. IBUPROFEN [Concomitant]
     Active Substance: IBUPROFEN
     Dosage: AS NECESSARY
     Route: 065
  39. EASYHALER BUDESONIDE [Concomitant]
     Dosage: UNK
     Route: 065
     Dates: start: 20140331
  40. BETAMETHASONE VALERATE\FUSIDIC ACID [Concomitant]
     Active Substance: BETAMETHASONE VALERATE\FUSIDIC ACID
     Dosage: 15 G, UNK
     Route: 065
     Dates: start: 20130715
  41. DEXAMETHASONE SODIUM PHOSPHATE\GENTAMICIN SULFATE [Concomitant]
     Active Substance: DEXAMETHASONE SODIUM PHOSPHATE\GENTAMICIN SULFATE
     Dosage: UNK
     Route: 065
     Dates: start: 20130712
  42. CITALOPRAM [Concomitant]
     Active Substance: CITALOPRAM HYDROBROMIDE
     Dosage: 1-0-0
     Route: 065
     Dates: start: 20130320, end: 20130327
  43. MEMANTINE [Concomitant]
     Active Substance: MEMANTINE
     Dosage: 500 MG, UNK
     Route: 065
     Dates: start: 20130627
  44. NEO ANGIN [AMYLMETACRESOL;DICHLOROBENZYL ALCOHOL;LEVOMENTHOL] [Concomitant]
     Route: 065
     Dates: start: 20131118

REACTIONS (18)
  - Muscle spasms [Recovered/Resolved]
  - Bulimia nervosa [Not Recovered/Not Resolved]
  - Hypersensitivity [Unknown]
  - Alanine aminotransferase increased [Not Recovered/Not Resolved]
  - Nausea [Unknown]
  - Circulatory collapse [Unknown]
  - Hypotension [Unknown]
  - Muscle spasms [Unknown]
  - Bulimia nervosa [Recovered/Resolved]
  - Bradycardia [Not Recovered/Not Resolved]
  - Dyspepsia [Recovered/Resolved]
  - Wound infection [Recovered/Resolved]
  - Weight decreased [Not Recovered/Not Resolved]
  - Abdominal discomfort [Recovered/Resolved]
  - Alcohol abuse [Recovered/Resolved]
  - Drug dependence [Not Recovered/Not Resolved]
  - Oropharyngeal pain [Recovered/Resolved]
  - Syncope [Unknown]

NARRATIVE: CASE EVENT DATE: 20130415
